FAERS Safety Report 9355629 (Version 1)
Quarter: 2013Q2

REPORT INFORMATION
  Report Type: Spontaneous
  Country: DE (occurrence: DE)
  Receive Date: 20130619
  Receipt Date: 20130619
  Transmission Date: 20140414
  Serious: Yes (Other)
  Sender: FDA-Public Use
  Company Number: DE-BRISTOL-MYERS SQUIBB COMPANY-19009273

PATIENT
  Age: 64 Year
  Sex: Male
  Weight: 84 kg

DRUGS (1)
  1. METFORMIN HCL [Suspect]
     Dosage: 1DF:1000 UNITS NOS

REACTIONS (3)
  - Rectal cancer [Unknown]
  - Abdominal discomfort [Unknown]
  - Pruritus [Recovered/Resolved]
